FAERS Safety Report 8372640-9 (Version None)
Quarter: 2012Q2

REPORT INFORMATION
  Report Type: 
  Country: None (occurrence: None)
  Receive Date: 20120521
  Receipt Date: 20120517
  Transmission Date: 20120825
  Serious: Yes (Death, Other)
  Sender: FDA-Public Use
  Company Number: PHHY2012KR042416

PATIENT
  Age: 59 Year
  Sex: Female

DRUGS (3)
  1. TRILEPTAL [Suspect]
     Dosage: 300 MG, BID
  2. TRILEPTAL [Suspect]
     Dosage: 450 MG, BID
     Dates: start: 20120423, end: 20120503
  3. TRILEPTAL [Suspect]
     Dosage: 150 MG, BID
     Dates: start: 20120409

REACTIONS (3)
  - ARRHYTHMIA [None]
  - RASH [None]
  - DEATH [None]
